FAERS Safety Report 9563933 (Version 6)
Quarter: 2014Q2

REPORT INFORMATION
  Report Type: Report from Study
  Country: GB (occurrence: GB)
  Receive Date: 20130928
  Receipt Date: 20140529
  Transmission Date: 20141212
  Serious: Yes (Hospitalization)
  Sender: FDA-Public Use
  Company Number: GB-ROCHE-1277603

PATIENT
  Age: 45 Year
  Sex: Female
  Weight: 90.9 kg

DRUGS (10)
  1. VEMURAFENIB [Suspect]
     Indication: MALIGNANT MELANOMA
     Route: 048
     Dates: start: 20130705, end: 20130915
  2. VEMURAFENIB [Suspect]
     Dosage: LAST DOSE PRIOR TO EVENT ON 31/OCT/2013
     Route: 048
     Dates: start: 20131022, end: 20131031
  3. BLACK COHOSH [Concomitant]
     Indication: HOT FLUSH
     Route: 048
     Dates: start: 20120101
  4. PARACETAMOL [Concomitant]
     Indication: PAIN
     Route: 048
     Dates: start: 20130701
  5. MIGRALEVE PINK [Concomitant]
     Route: 048
     Dates: start: 20130701
  6. PIRITON [Concomitant]
     Indication: RASH
     Dosage: SELECT IF ONGOING=YES
     Route: 048
     Dates: start: 20130719
  7. DERMOVATE [Concomitant]
     Indication: RASH
     Route: 065
     Dates: start: 20130719
  8. BETNOVATE [Concomitant]
     Indication: RASH
     Dosage: ROUTE=DE
     Route: 065
     Dates: start: 20130801
  9. CLINDAMYCIN [Concomitant]
     Indication: RASH
     Dosage: ROUTE=DE
     Route: 065
     Dates: start: 20130801
  10. PLACEBO [Suspect]
     Indication: MALIGNANT MELANOMA
     Route: 048
     Dates: start: 20130706, end: 20130915

REACTIONS (2)
  - Tachycardia [Recovered/Resolved with Sequelae]
  - Supraventricular tachycardia [Recovered/Resolved]
